FAERS Safety Report 7269914-1 (Version None)
Quarter: 2011Q1

REPORT INFORMATION
  Report Type: 
  Country: None (occurrence: None)
  Receive Date: 20110125
  Receipt Date: 20110125
  Transmission Date: 20110831
  Serious: Yes (Other)
  Sender: FDA-Public Use
  Company Number: None

PATIENT
  Sex: Male

DRUGS (1)
  1. CLOZAPINE [Suspect]
     Indication: SCHIZOPHRENIA
     Dosage: 300MG HS PO
     Route: 048
     Dates: start: 20100927, end: 20101015

REACTIONS (6)
  - HYPERHIDROSIS [None]
  - TREMOR [None]
  - HYPERTENSION [None]
  - TACHYCARDIA [None]
  - CHILLS [None]
  - DROOLING [None]
